FAERS Safety Report 14841728 (Version 13)
Quarter: 2019Q4

REPORT INFORMATION
  Report Type: Report from Study
  Country: BE (occurrence: BE)
  Receive Date: 20180503
  Receipt Date: 20191219
  Transmission Date: 20200122
  Serious: Yes (Hospitalization, Other)
  Sender: FDA-Public Use
  Company Number: BE-TEVA-2018-BE-888763

PATIENT
  Age: 59 Year
  Sex: Female
  Weight: 66 kg

DRUGS (25)
  1. 5-FU [Suspect]
     Active Substance: FLUOROURACIL
     Dosage: 1 UNK
     Route: 042
  2. 5-FU [Suspect]
     Active Substance: FLUOROURACIL
     Dosage: UNK UNK,QCY
     Route: 040
  3. PEGYLATED LIPOSOMAL IRINOTECAN [Suspect]
     Active Substance: IRINOTECAN HYDROCHLORIDE
     Indication: OFF LABEL USE
  4. CIPROXINE [Concomitant]
     Active Substance: CIPROFLOXACIN
     Indication: PRODUCT USED FOR UNKNOWN INDICATION
     Dosage: UNK ,BID
     Route: 065
     Dates: start: 20171205, end: 20171214
  5. BACLOFEN. [Concomitant]
     Active Substance: BACLOFEN
     Indication: HICCUPS
     Route: 065
     Dates: start: 20170503
  6. COVERAM [Concomitant]
     Active Substance: AMLODIPINE\PERINDOPRIL
     Route: 065
     Dates: start: 20171205, end: 20171214
  7. LEUCOVORIN. [Suspect]
     Active Substance: LEUCOVORIN
     Dosage: 1 UNK, UNK
     Route: 042
  8. BUSCOPAN [Concomitant]
     Active Substance: BUTYLSCOPOLAMINE BROMIDE
     Route: 065
     Dates: start: 20170916
  9. OLANZAPINE. [Concomitant]
     Active Substance: OLANZAPINE
     Indication: PRODUCT USED FOR UNKNOWN INDICATION
     Dosage: 20 MILLIGRAM DAILY; 20 MG,BID
     Route: 065
     Dates: start: 20170503, end: 20171223
  10. LEUCOVORIN. [Suspect]
     Active Substance: LEUCOVORIN
     Indication: COLORECTAL CANCER METASTATIC
     Dosage: 1UNK,UNK
     Route: 042
  11. AFLIBERCEPT [Suspect]
     Active Substance: AFLIBERCEPT
     Route: 042
  12. BUSCOPAN [Concomitant]
     Active Substance: BUTYLSCOPOLAMINE BROMIDE
     Indication: PRODUCT USED FOR UNKNOWN INDICATION
     Dosage: AS NECESSARY
     Route: 065
     Dates: start: 20170919
  13. PANTOPRAZOLE [Concomitant]
     Active Substance: PANTOPRAZOLE
     Indication: PRODUCT USED FOR UNKNOWN INDICATION
     Dosage: UNK UNK,QD
     Route: 065
     Dates: start: 20170601
  14. LAXIDO [Concomitant]
     Active Substance: POLYETHYLENE GLYCOL 3350\POTASSIUM CHLORIDE\SODIUM BICARBONATE\SODIUM CHLORIDE
     Indication: PRODUCT USED FOR UNKNOWN INDICATION
     Dosage: UNK UNK,PRN
     Route: 065
     Dates: start: 20170523
  15. COVERAM [Concomitant]
     Active Substance: AMLODIPINE\PERINDOPRIL
     Route: 065
     Dates: start: 20170523
  16. IMODIUM [Concomitant]
     Active Substance: LOPERAMIDE HYDROCHLORIDE
     Dates: start: 20171205, end: 20171214
  17. AMLODIPINE BESILATE [Concomitant]
     Active Substance: AMLODIPINE BESYLATE
     Route: 065
  18. TRIPLIXAM [Concomitant]
     Active Substance: AMLODIPINE BESYLATE\INDAPAMIDE\PERINDOPRIL ARGININE
     Indication: PRODUCT USED FOR UNKNOWN INDICATION
     Route: 065
     Dates: start: 20171102
  19. IMODIUM [Concomitant]
     Active Substance: LOPERAMIDE HYDROCHLORIDE
     Indication: PRODUCT USED FOR UNKNOWN INDICATION
     Dosage: AS NECESSARY
     Route: 065
     Dates: start: 20170919
  20. PEGYLATED LIPOSOMAL IRINOTECAN [Suspect]
     Active Substance: IRINOTECAN HYDROCHLORIDE
     Indication: COLORECTAL CANCER METASTATIC
     Dosage: 1 UNK, UNK
     Route: 042
  21. IMODIUM [Concomitant]
     Active Substance: LOPERAMIDE HYDROCHLORIDE
     Dates: start: 20170523
  22. AFLIBERCEPT [Suspect]
     Active Substance: AFLIBERCEPT
     Indication: COLORECTAL CANCER METASTATIC
     Dosage: 1 UNK, UNK
     Route: 042
  23. EMCONCOR MITIS [Concomitant]
     Indication: PRODUCT USED FOR UNKNOWN INDICATION
     Dosage: 2.5 MILLIGRAM DAILY;
     Route: 065
     Dates: start: 20170523
  24. 5-FU [Suspect]
     Active Substance: FLUOROURACIL
     Indication: COLORECTAL CANCER METASTATIC
     Dosage: 1 UNK, UNK
     Route: 040
  25. COVERAM [Concomitant]
     Active Substance: AMLODIPINE\PERINDOPRIL
     Route: 065

REACTIONS (5)
  - Off label use [Unknown]
  - Maternal exposure during pregnancy [Unknown]
  - Mesenteric artery thrombosis [Not Recovered/Not Resolved]
  - Overdose [Unknown]
  - Neutropenia [Recovered/Resolved]

NARRATIVE: CASE EVENT DATE: 20171229
